FAERS Safety Report 13383411 (Version 1)
Quarter: 2017Q1

REPORT INFORMATION
  Report Type: Report from Study
  Country: None (occurrence: DE)
  Receive Date: 20170329
  Receipt Date: 20170329
  Transmission Date: 20170429
  Serious: Yes (Hospitalization, Other)
  Sender: FDA-Public Use
  Company Number: DE-ABBVIE-17K-062-1919369-00

PATIENT

DRUGS (7)
  1. FOLIC ACID. [Concomitant]
     Active Substance: FOLIC ACID
     Indication: PRODUCT USED FOR UNKNOWN INDICATION
  2. HUMIRA [Suspect]
     Active Substance: ADALIMUMAB
     Indication: RHEUMATOID ARTHRITIS
     Route: 058
  3. PANTOPRAZOLE [Concomitant]
     Active Substance: PANTOPRAZOLE SODIUM
     Indication: PRODUCT USED FOR UNKNOWN INDICATION
  4. PREDNISOLONE. [Concomitant]
     Active Substance: PREDNISOLONE
     Indication: PRODUCT USED FOR UNKNOWN INDICATION
  5. VIGANTOLETTEN [Concomitant]
     Active Substance: CHOLECALCIFEROL
     Indication: PRODUCT USED FOR UNKNOWN INDICATION
  6. LANTAREL [Concomitant]
     Active Substance: METHOTREXATE SODIUM
     Indication: PRODUCT USED FOR UNKNOWN INDICATION
  7. RAMIPRIL. [Concomitant]
     Active Substance: RAMIPRIL
     Indication: PRODUCT USED FOR UNKNOWN INDICATION

REACTIONS (16)
  - Fine motor skill dysfunction [Recovering/Resolving]
  - Low density lipoprotein increased [Unknown]
  - Monoparesis [Recovering/Resolving]
  - Cerebral arteriosclerosis [Unknown]
  - Left ventricular hypertrophy [Unknown]
  - Embolic cerebral infarction [Recovering/Resolving]
  - Pulmonary hypertension [Unknown]
  - Polyp [Unknown]
  - Cerebellar ataxia [Unknown]
  - Cerebral ischaemia [Unknown]
  - Ventricular extrasystoles [Unknown]
  - Vertebral artery hypoplasia [Unknown]
  - Muscular weakness [Recovering/Resolving]
  - Mean cell volume increased [Unknown]
  - Gamma-glutamyltransferase increased [Unknown]
  - Platelet count decreased [Unknown]

NARRATIVE: CASE EVENT DATE: 201703
